FAERS Safety Report 4921353-1 (Version None)
Quarter: 2006Q1

REPORT INFORMATION
  Report Type: 
  Country: None (occurrence: None)
  Receive Date: 20060224
  Receipt Date: 20060214
  Transmission Date: 20060701
  Serious: Yes (Other)
  Sender: FDA-Public Use
  Company Number: US-JNJFOC-20060204229

PATIENT

DRUGS (3)
  1. DOXIL [Suspect]
     Route: 042
  2. CYCLOPHOSPHAMIDE [Suspect]
     Route: 040
  3. ONDANSETRON [Concomitant]
     Indication: PREMEDICATION
     Route: 042

REACTIONS (1)
  - MYOCARDIAL INFARCTION [None]
